FAERS Safety Report 21895634 (Version 1)
Quarter: 2023Q1

REPORT INFORMATION
  Report Type: Spontaneous
  Country: US (occurrence: US)
  Receive Date: 20230123
  Receipt Date: 20230123
  Transmission Date: 20230417
  Serious: No
  Sender: FDA-Public Use
  Company Number: US-JNJFOC-20230135558

PATIENT
  Age: 61 Year
  Sex: Female
  Weight: 108.96 kg

DRUGS (2)
  1. TREMFYA [Suspect]
     Active Substance: GUSELKUMAB
     Indication: Psoriatic arthropathy
     Route: 065
     Dates: start: 20221206
  2. REMICADE [Concomitant]
     Active Substance: INFLIXIMAB
     Dates: end: 20221103

REACTIONS (4)
  - Product quality issue [Unknown]
  - Product storage error [Unknown]
  - Product dose omission issue [Unknown]
  - Malaise [Unknown]

NARRATIVE: CASE EVENT DATE: 20230106
